FAERS Safety Report 4365906-0 (Version None)
Quarter: 2004Q2

REPORT INFORMATION
  Report Type: 
  Country: None (occurrence: None)
  Receive Date: 20040527
  Receipt Date: 20040519
  Transmission Date: 20050107
  Serious: Yes (Other)
  Sender: FDA-Public Use
  Company Number: JP-BRISTOL-MYERS SQUIBB COMPANY-12591749

PATIENT
  Age: 64 Year
  Sex: Female

DRUGS (4)
  1. MITOMYCIN-C BULK POWDER [Suspect]
     Indication: OVARIAN CANCER
     Dosage: THERAPY DATES: JAN TO MAR-2004
     Route: 042
     Dates: start: 20040301, end: 20040301
  2. CARBOPLATIN [Suspect]
     Indication: OVARIAN CANCER
  3. PACLITAXEL [Suspect]
     Indication: OVARIAN CANCER
  4. TOPOTECIN [Suspect]
     Indication: OVARIAN CANCER
     Dosage: THERAPY DATES: JAN TO MAR-2004
     Route: 042
     Dates: start: 20040301, end: 20040301

REACTIONS (1)
  - LEUKOENCEPHALOPATHY [None]
